FAERS Safety Report 7999126-5 (Version None)
Quarter: 2011Q4

REPORT INFORMATION
  Report Type: 
  Country: None (occurrence: None)
  Receive Date: 20111216
  Receipt Date: 20111128
  Transmission Date: 20120403
  Serious: Yes (Hospitalization)
  Sender: FDA-Public Use
  Company Number: AUR-APL-2011-04659

PATIENT
  Age: 62 Year
  Sex: Male

DRUGS (9)
  1. LISINOPRIL [Concomitant]
  2. SIMVASTATIN [Concomitant]
  3. METFORMIN HCL [Suspect]
     Indication: DIABETES MELLITUS
     Dosage: 2000 MG (1000 MG,2 IN 1 D),ORAL
     Route: 048
     Dates: start: 20000101
  4. MELOXICAM [Concomitant]
  5. GLYBURIDE [Suspect]
     Indication: DIABETES MELLITUS
     Dosage: 2 MG (2 MG,1 IN 1 D),ORAL
     Route: 048
     Dates: start: 20000101
  6. BLINDED THERAPY [Suspect]
     Indication: TYPE 2 DIABETES MELLITUS
     Dosage: 2.5 MG (2.5 MG,1 IN 1 D),ORAL
     Route: 048
     Dates: start: 20101028, end: 20101122
  7. PIROXICAM [Concomitant]
  8. ASPIRIN [Concomitant]
  9. TRILIPIX [Suspect]
     Indication: PRODUCT USED FOR UNKNOWN INDICATION
     Dates: start: 20090101

REACTIONS (8)
  - HUNGER [None]
  - CONFUSIONAL STATE [None]
  - HYPOAESTHESIA ORAL [None]
  - TREMOR [None]
  - HYPOGLYCAEMIA [None]
  - PARAESTHESIA [None]
  - DIZZINESS [None]
  - VISION BLURRED [None]
